FAERS Safety Report 21260457 (Version 6)
Quarter: 2025Q1

REPORT INFORMATION
  Report Type: Report from Study
  Country: US (occurrence: US)
  Receive Date: 20220826
  Receipt Date: 20250304
  Transmission Date: 20250409
  Serious: Yes (Hospitalization, Other)
  Sender: TAKEDA
  Company Number: US-TAKEDA-US202012033

PATIENT
  Age: 63 Year
  Sex: Female

DRUGS (2)
  1. HUMAN IMMUNOGLOBULIN G [Suspect]
     Active Substance: HUMAN IMMUNOGLOBULIN G
     Indication: Hypogammaglobulinaemia
     Dosage: 10 GRAM, 1/WEEK
  2. HUMAN IMMUNOGLOBULIN G [Suspect]
     Active Substance: HUMAN IMMUNOGLOBULIN G
     Indication: Primary immunodeficiency syndrome

REACTIONS (14)
  - Sinus arrhythmia [Unknown]
  - Gastrooesophageal reflux disease [Recovering/Resolving]
  - Respiratory syncytial virus infection [Unknown]
  - Fall [Unknown]
  - Skin laceration [Unknown]
  - Product dose omission issue [Unknown]
  - Influenza [Recovering/Resolving]
  - Asthma [Unknown]
  - Chest pain [Unknown]
  - Dyspnoea [Unknown]
  - Product use issue [Unknown]
  - Insurance issue [Unknown]
  - Pharyngitis [Recovering/Resolving]
  - Sinusitis [Not Recovered/Not Resolved]

NARRATIVE: CASE EVENT DATE: 20200308
